FAERS Safety Report 9448975 (Version 2)
Quarter: 2013Q3

REPORT INFORMATION
  Report Type: Spontaneous
  Country: CA (occurrence: None)
  Receive Date: 20130806
  Receipt Date: 20130821
  Transmission Date: 20140515
  Serious: Yes (Other)
  Sender: FDA-Public Use
  Company Number: 20130360

PATIENT
  Sex: Female

DRUGS (1)
  1. VENOFER [Suspect]
     Indication: IRON DEFICIENCY ANAEMIA
     Dosage: 1/2 HRS
     Route: 042
     Dates: start: 20130715, end: 20130715

REACTIONS (11)
  - Asthenia [None]
  - Nausea [None]
  - Tremor [None]
  - Pallor [None]
  - Muscle spasms [None]
  - Dysgeusia [None]
  - Dry mouth [None]
  - Dizziness [None]
  - Abasia [None]
  - White blood cell count increased [None]
  - Blood iron increased [None]
